FAERS Safety Report 9414856 (Version 6)
Quarter: 2013Q4

REPORT INFORMATION
  Report Type: Spontaneous
  Country: FR (occurrence: FR)
  Receive Date: 20130723
  Receipt Date: 20131022
  Transmission Date: 20140711
  Serious: Yes (Life-Threatening, Hospitalization, Other)
  Sender: FDA-Public Use
  Company Number: FR-AMGEN-FRASP2013050591

PATIENT
  Age: 58 Year
  Sex: Male
  Weight: 98 kg

DRUGS (12)
  1. ENBREL [Suspect]
     Indication: PRODUCT USED FOR UNKNOWN INDICATION
     Dosage: 50 MG, WEEKLY
     Route: 058
     Dates: start: 2013
  2. ROACTEMRA [Suspect]
     Indication: PRODUCT USED FOR UNKNOWN INDICATION
     Dosage: 20 MG/ML, UNK
     Route: 042
  3. PARACETAMOL [Concomitant]
     Dosage: 1 G, AS NEEDED
  4. ACTONEL COMBI                      /02223601/ [Concomitant]
     Dosage: ONE TABLET EVERY THURSDAYS AND ONE SACHET EVERY DAY FOR THE REST OF THE WEEK
     Route: 048
  5. DUPHALAC                           /00163401/ [Concomitant]
     Dosage: 1 DF, 1X/DAY
     Route: 048
  6. OMEPRAZOLE [Concomitant]
     Dosage: 20 MG, 1X/DAY
     Route: 048
  7. SKENAN [Concomitant]
     Dosage: 20 MG, 2X/DAY
     Route: 048
  8. HYDROCORTISONE [Concomitant]
     Dosage: 10 MG IN THE MORNING AND 5 MG AT NOON
     Route: 048
  9. SERETIDE [Concomitant]
     Dosage: 1 DF, 2X/DAY (ONCE IN THE MORNING AND EVENING)
     Route: 055
  10. DIFFU K [Concomitant]
     Dosage: 600 MG, 1X/DAY
     Route: 048
  11. AMLODIPINE [Concomitant]
     Dosage: 5 MG, 1X/DAY
     Route: 048
  12. ALLOPURINOL [Concomitant]
     Dosage: 100 MG, 2X/DAY
     Route: 048

REACTIONS (7)
  - Hepatocellular injury [Recovered/Resolved]
  - Cholestasis [Recovered/Resolved]
  - Chills [Unknown]
  - Headache [Unknown]
  - Diverticulum [Unknown]
  - Septic shock [Recovered/Resolved]
  - Pyrexia [Recovered/Resolved]
